FAERS Safety Report 24445162 (Version 1)
Quarter: 2024Q4

REPORT INFORMATION
  Report Type: Spontaneous
  Country: EG (occurrence: EG)
  Receive Date: 20241016
  Receipt Date: 20241016
  Transmission Date: 20250115
  Serious: Yes (Hospitalization, Other)
  Sender: GLAND PHARMA LTD
  Company Number: EG-GLANDPHARMA-EG-2024GLNLIT00854

PATIENT
  Age: 42 Year
  Sex: Male

DRUGS (2)
  1. ENOXAPARIN SODIUM [Suspect]
     Active Substance: ENOXAPARIN SODIUM
     Indication: Cardiac ventricular thrombosis
     Route: 065
  2. WARFARIN [Suspect]
     Active Substance: WARFARIN
     Indication: Cardiac ventricular thrombosis
     Route: 065

REACTIONS (4)
  - Haematemesis [Unknown]
  - Melaena [Unknown]
  - Epistaxis [Unknown]
  - Product use in unapproved indication [Unknown]
